FAERS Safety Report 7163671-5 (Version None)
Quarter: 2010Q4

REPORT INFORMATION
  Report Type: 
  Country: None (occurrence: None)
  Receive Date: 20101215
  Receipt Date: 20100526
  Transmission Date: 20110411
  Serious: Yes (Other)
  Sender: FDA-Public Use
  Company Number: BR-PFIZER INC-2010032833

PATIENT
  Age: 80 Year
  Sex: Female
  Weight: 80 kg

DRUGS (9)
  1. LYRICA [Suspect]
     Indication: HERPES ZOSTER
     Dosage: 75 MG, 1X/DAY
     Route: 048
     Dates: start: 20100310
  2. LYRICA [Suspect]
     Indication: NEURALGIA
     Dosage: 150 MG, 1X/DAY
     Route: 048
  3. PREDNISOLONE [Concomitant]
     Dosage: 5 MG, UNK
  4. BUDESONIDE/FORMOTEROL FUMARATE [Concomitant]
     Indication: ASTHMA
     Dosage: 12/400UG
  5. FORADIL [Concomitant]
     Indication: ASTHMA
     Dosage: UNK
  6. AMLODIPINE BESILATE [Concomitant]
     Indication: HYPERTENSION
     Dosage: 5 MG, UNK
  7. OMEPRAZOLE [Concomitant]
     Indication: GASTROOESOPHAGEAL REFLUX DISEASE
     Dosage: UNK
  8. HYGROTON [Concomitant]
     Dosage: UNK
  9. PREDNISONE [Concomitant]
     Dosage: UNK

REACTIONS (6)
  - CHRONIC OBSTRUCTIVE PULMONARY DISEASE [None]
  - DIZZINESS [None]
  - FEELING ABNORMAL [None]
  - FEELING DRUNK [None]
  - MALAISE [None]
  - TREMOR [None]
